FAERS Safety Report 13139087 (Version 1)
Quarter: 2017Q1

REPORT INFORMATION
  Report Type: Report from Study
  Country: CO (occurrence: CO)
  Receive Date: 20170123
  Receipt Date: 20170123
  Transmission Date: 20170428
  Serious: Yes (Other)
  Sender: FDA-Public Use
  Company Number: PHHY2017CO009481

PATIENT
  Age: 20 Year
  Sex: Male
  Weight: 69 kg

DRUGS (1)
  1. GILENYA [Suspect]
     Active Substance: FINGOLIMOD HYDROCHLORIDE
     Indication: MULTIPLE SCLEROSIS
     Dosage: 0.5 MG, QD
     Route: 048
     Dates: start: 20150915, end: 20170113

REACTIONS (2)
  - Central nervous system lesion [Unknown]
  - Paraesthesia [Unknown]

NARRATIVE: CASE EVENT DATE: 201606
